FAERS Safety Report 13454578 (Version 1)
Quarter: 2017Q2

REPORT INFORMATION
  Report Type: Spontaneous
  Country: US (occurrence: US)
  Receive Date: 20170418
  Receipt Date: 20170418
  Transmission Date: 20170830
  Serious: No
  Sender: FDA-Public Use
  Company Number: US-ALLERGAN-1705335US

PATIENT
  Age: 86 Year
  Sex: Male

DRUGS (2)
  1. LUMIGAN [Suspect]
     Active Substance: BIMATOPROST
     Indication: GLAUCOMA
     Route: 047
  2. LUMIGAN [Suspect]
     Active Substance: BIMATOPROST
     Indication: MACULAR DEGENERATION

REACTIONS (3)
  - Eye disorder [Recovered/Resolved]
  - Eye irritation [Recovered/Resolved]
  - Off label use [Unknown]

NARRATIVE: CASE EVENT DATE: 201701
